FAERS Safety Report 9123190 (Version 1)
Quarter: 2013Q1

REPORT INFORMATION
  Report Type: Spontaneous
  Country: US (occurrence: None)
  Receive Date: 20130131
  Receipt Date: 20130131
  Transmission Date: 20140127
  Serious: Yes (Death)
  Sender: FDA-Public Use
  Company Number: DKLU1088328

PATIENT
  Age: 38 Year
  Sex: Male

DRUGS (1)
  1. DESOXYN [Suspect]
     Indication: PRODUCT USED FOR UNKNOWN INDICATION
     Route: 048

REACTIONS (21)
  - Intentional drug misuse [None]
  - Metabolic acidosis [None]
  - Muscle necrosis [None]
  - Rhabdomyolysis [None]
  - Oliguria [None]
  - Euphoric mood [None]
  - Musculoskeletal stiffness [None]
  - Hyperhidrosis [None]
  - Sinus tachycardia [None]
  - Mydriasis [None]
  - Depressed level of consciousness [None]
  - Hallucination, visual [None]
  - Tachypnoea [None]
  - Body temperature increased [None]
  - Blood glucose increased [None]
  - Blood creatinine increased [None]
  - Amylase increased [None]
  - Troponin I increased [None]
  - Hypotension [None]
  - Ejection fraction decreased [None]
  - Cardiac arrest [None]
